FAERS Safety Report 24196491 (Version 2)
Quarter: 2024Q4

REPORT INFORMATION
  Report Type: Spontaneous
  Country: US (occurrence: US)
  Receive Date: 20240810
  Receipt Date: 20241018
  Transmission Date: 20250114
  Serious: No
  Sender: SANOFI AVENTIS
  Company Number: US-SA-SAC20240807000222

PATIENT
  Age: 54 Year
  Sex: Female

DRUGS (19)
  1. DUPIXENT [Suspect]
     Active Substance: DUPILUMAB
     Indication: Asthma
     Dosage: 600 MG, 1X
     Route: 058
     Dates: start: 20240801, end: 20240801
  2. DUPIXENT [Suspect]
     Active Substance: DUPILUMAB
     Dosage: 300 MG, QOW
     Route: 058
     Dates: start: 202408
  3. AZELASTINE [Concomitant]
     Active Substance: AZELASTINE
     Dosage: UNK
  4. DULOXETINE [Concomitant]
     Active Substance: DULOXETINE
     Dosage: UNK
  5. ESTRADIOL [Concomitant]
     Active Substance: ESTRADIOL
     Dosage: UNK
  6. FLUNISOLIDE [Concomitant]
     Active Substance: FLUNISOLIDE
     Dosage: UNK
  7. FUROSEMIDE [Concomitant]
     Active Substance: FUROSEMIDE
     Dosage: UNK
  8. GABAPENTIN [Concomitant]
     Active Substance: GABAPENTIN
     Dosage: UNK
  9. HYDROXYZINE [Concomitant]
     Active Substance: HYDROXYZINE HYDROCHLORIDE
     Dosage: UNK
  10. MELOXICAM [Concomitant]
     Active Substance: MELOXICAM
     Dosage: UNK
  11. METHOTREXATE [Concomitant]
     Active Substance: METHOTREXATE
     Dosage: UNK
  12. MONTELUKAST [Concomitant]
     Active Substance: MONTELUKAST
     Dosage: UNK
  13. OMEPRAZOLE [Concomitant]
     Active Substance: OMEPRAZOLE
     Dosage: UNK
  14. PRAZOSIN HYDROCHLORIDE [Concomitant]
     Active Substance: PRAZOSIN HYDROCHLORIDE
     Dosage: UNK
  15. PREDNISONE [Concomitant]
     Active Substance: PREDNISONE
     Dosage: UNK
  16. TRIAMTERENE [Concomitant]
     Active Substance: TRIAMTERENE
     Dosage: UNK
  17. ALBUTEROL SULFATE [Concomitant]
     Active Substance: ALBUTEROL SULFATE
  18. BREZTRI [Concomitant]
     Active Substance: BUDESONIDE\FORMOTEROL\GLYCOPYRROLATE
  19. LEVOCETIRIZINE [Concomitant]
     Active Substance: LEVOCETIRIZINE

REACTIONS (6)
  - Depression [Unknown]
  - Psychiatric symptom [Unknown]
  - Hot flush [Unknown]
  - Injection site mass [Not Recovered/Not Resolved]
  - Bronchitis [Unknown]
  - Intentional dose omission [Unknown]

NARRATIVE: CASE EVENT DATE: 20240101
